FAERS Safety Report 22599831 (Version 1)
Quarter: 2023Q2

REPORT INFORMATION
  Report Type: Spontaneous
  Country: US (occurrence: None)
  Receive Date: 20230613
  Receipt Date: 20230613
  Transmission Date: 20230721
  Serious: Yes (Life-Threatening, Hospitalization)
  Sender: FDA-Public Use
  Company Number: None

PATIENT
  Age: 46 Year
  Sex: Male
  Weight: 160.2 kg

DRUGS (3)
  1. LUMASON [Suspect]
     Active Substance: SULFUR HEXAFLUORIDE
     Indication: Echocardiogram
     Dosage: OTHER FREQUENCY : ONCE;?
     Route: 042
  2. EPINEPHRINE [Concomitant]
     Active Substance: EPINEPHRINE
     Dates: start: 20230613
  3. OXYGEN [Concomitant]
     Active Substance: OXYGEN
     Dates: start: 20230613

REACTIONS (7)
  - Nausea [None]
  - Vomiting [None]
  - Dyspnoea [None]
  - Hyperhidrosis [None]
  - Cyanosis [None]
  - Cardio-respiratory arrest [None]
  - Contrast media reaction [None]

NARRATIVE: CASE EVENT DATE: 20230613
